FAERS Safety Report 13054443 (Version 2)
Quarter: 2017Q1

REPORT INFORMATION
  Report Type: Spontaneous
  Country: BE (occurrence: BE)
  Receive Date: 20161222
  Receipt Date: 20170131
  Transmission Date: 20170428
  Serious: Yes (Death)
  Sender: FDA-Public Use
  Company Number: BE-ACTELION-A-CH2016-147086

PATIENT
  Age: 64 Year
  Sex: Female

DRUGS (1)
  1. VELETRI [Suspect]
     Active Substance: EPOPROSTENOL
     Indication: PULMONARY ARTERIAL HYPERTENSION
     Dosage: 17 NG/KG, PER MIN
     Route: 042
     Dates: start: 20140915, end: 20160502

REACTIONS (5)
  - Palliative care [Unknown]
  - Right ventricular failure [Fatal]
  - Cardiomegaly [Fatal]
  - Oedema [Fatal]
  - Weight increased [Fatal]
